FAERS Safety Report 10214903 (Version 1)
Quarter: 2014Q1

REPORT INFORMATION
  Report Type: Spontaneous
  Country: US (occurrence: None)
  Receive Date: 20140306
  Receipt Date: 20140306
  Transmission Date: 20141002
  Serious: Yes (Other)
  Sender: FDA-Public Use
  Company Number: 163-21880-12110130

PATIENT
  Age: 65 Year
  Sex: Female
  Weight: 123.65 kg

DRUGS (10)
  1. REVLIMID [Suspect]
     Indication: PLASMA CELL MYELOMA
     Route: 048
     Dates: start: 20121001, end: 20121009
  2. DEXAMETHASONE (DEXAMETHASONE) (UNKNOWN) [Concomitant]
  3. SYNTHROID (LEVOTHYROXINE) (UNKNOWN) [Concomitant]
  4. LOSARTAN/HYDROCHLOROTHIAZIDE (HYZAAR) (UNKNOWN) [Concomitant]
  5. ASPIRIN (ACETYLSALICYLIC ACID) (UNKNOWN) (ACETYLSALICYLIC ACID) [Concomitant]
  6. CENTRUM SILVER (CENTRUM SILVER) (UNKNOWN) [Concomitant]
  7. CALCIUM (CALCIUM) (UNKNOWN) [Concomitant]
  8. VITAMIN D3 (COLECALCIFEROL) (UNKNOWN) [Concomitant]
  9. FISH OIL (FISH OIL) (UNKNOWN) [Concomitant]
  10. VITAMIN B12 (CYANOCOBALAMIN) (UNKNOWN) [Concomitant]

REACTIONS (13)
  - Rash [None]
  - Swelling [None]
  - Nausea [None]
  - Diarrhoea [None]
  - Vomiting [None]
  - Fatigue [None]
  - Pyrexia [None]
  - Chills [None]
  - Pain [None]
  - Myalgia [None]
  - Bone pain [None]
  - Asthenia [None]
  - Drug intolerance [None]
